FAERS Safety Report 9518561 (Version 7)
Quarter: 2015Q1

REPORT INFORMATION
  Report Type: Report from Study
  Country: GB (occurrence: GB)
  Receive Date: 20130912
  Receipt Date: 20150320
  Transmission Date: 20150721
  Serious: Yes (Hospitalization)
  Sender: FDA-Public Use
  Company Number: PHHY2013GB091350

PATIENT
  Age: 7 Year
  Sex: Male
  Weight: 38 kg

DRUGS (2)
  1. ICL670A [Suspect]
     Active Substance: DEFERASIROX
     Indication: HAEMOSIDEROSIS
     Dosage: 1250 MG, QD
     Route: 065
     Dates: start: 20110209
  2. ICL670A [Suspect]
     Active Substance: DEFERASIROX
     Indication: SICKLE CELL ANAEMIA
     Dosage: 20 MG/ KG, QD (750 MG)
     Route: 065
     Dates: start: 201308

REACTIONS (6)
  - Decreased appetite [Recovering/Resolving]
  - Abdominal pain [Recovering/Resolving]
  - Weight decreased [Recovering/Resolving]
  - Vomiting [Recovering/Resolving]
  - Gastroenteritis viral [Recovered/Resolved]
  - Vomiting [Recovering/Resolving]

NARRATIVE: CASE EVENT DATE: 20130703
